FAERS Safety Report 5209125-4 (Version None)
Quarter: 2007Q1

REPORT INFORMATION
  Report Type: 
  Country: None (occurrence: None)
  Receive Date: 20070116
  Receipt Date: 20070111
  Transmission Date: 20070707
  Serious: No
  Sender: FDA-Public Use
  Company Number: -BAXTER-2005BH003040

PATIENT
  Age: 54 Year
  Sex: Male

DRUGS (8)
  1. DEXAMETHASONE [Suspect]
     Indication: MULTIPLE MYELOMA
     Dosage: DOSE UNIT:UNKNOWN
     Route: 065
  2. CYCLOPHOSPHAMIDE [Suspect]
     Indication: MULTIPLE MYELOMA
     Dosage: DOSE UNIT:UNKNOWN
     Route: 065
  3. VINCRISTINE SULFATE [Suspect]
     Indication: MULTIPLE MYELOMA
     Dosage: DOSE UNIT:UNKNOWN
     Route: 065
  4. METHYLPREDNISOLONE 16MG TAB [Suspect]
     Indication: MULTIPLE MYELOMA
     Dosage: DOSE UNIT:UNKNOWN
     Route: 065
  5. THALIDOMIDE [Suspect]
     Indication: MULTIPLE MYELOMA
     Route: 065
  6. MELPHALAN [Suspect]
     Indication: MULTIPLE MYELOMA
     Dosage: DOSE UNIT:UNKNOWN
     Route: 065
  7. PREDNISONE TAB [Suspect]
     Indication: MULTIPLE MYELOMA
     Dosage: DOSE UNIT:UNKNOWN
     Route: 065
  8. ADRIAMYCIN PFS [Suspect]
     Indication: MULTIPLE MYELOMA
     Dosage: DOSE UNIT:UNKNOWN
     Route: 065

REACTIONS (2)
  - LEUKAEMIA PLASMACYTIC [None]
  - TREATMENT RELATED SECONDARY MALIGNANCY [None]
